FAERS Safety Report 22203603 (Version 1)
Quarter: 2023Q2

REPORT INFORMATION
  Report Type: Spontaneous
  Country: CN (occurrence: CN)
  Receive Date: 20230412
  Receipt Date: 20230412
  Transmission Date: 20230722
  Serious: Yes (Hospitalization, Other)
  Sender: FDA-Public Use
  Company Number: CN-MLMSERVICE-20230329-4187255-1

PATIENT
  Age: 50 Year
  Sex: Male

DRUGS (7)
  1. OLANZAPINE [Interacting]
     Active Substance: OLANZAPINE
     Indication: Psychotic symptom
     Route: 065
  2. OLANZAPINE [Interacting]
     Active Substance: OLANZAPINE
     Dosage: 20 MG, DAILY
     Route: 065
  3. FLUVOXAMINE [Interacting]
     Active Substance: FLUVOXAMINE
     Indication: Obsessive-compulsive disorder
     Dosage: 50 MG/D (TWICE DAILY)
     Route: 065
     Dates: start: 2022
  4. FLUVOXAMINE [Interacting]
     Active Substance: FLUVOXAMINE
     Indication: Anxiety disorder
     Dosage: 200 MG, DAILY
     Route: 065
     Dates: start: 2022
  5. FLUVOXAMINE [Interacting]
     Active Substance: FLUVOXAMINE
     Dosage: 100 MG, BID
     Route: 065
     Dates: start: 2022
  6. BUSPIRONE [Suspect]
     Active Substance: BUSPIRONE HYDROCHLORIDE
     Indication: Obsessive-compulsive disorder
     Dosage: 15 MG/D (THRICE DAILY)
     Route: 065
  7. BUSPIRONE [Suspect]
     Active Substance: BUSPIRONE HYDROCHLORIDE
     Indication: Anxiety disorder
     Dosage: 30 MG, DAILY
     Route: 065

REACTIONS (6)
  - Drug level above therapeutic [Recovering/Resolving]
  - Drug interaction [Not Recovered/Not Resolved]
  - Constipation [Recovering/Resolving]
  - Blood prolactin increased [Recovering/Resolving]
  - Vomiting [Recovered/Resolved]
  - Nausea [Recovered/Resolved]
